FAERS Safety Report 7775587-1 (Version None)
Quarter: 2011Q3

REPORT INFORMATION
  Report Type: 
  Country: None (occurrence: None)
  Receive Date: 20110923
  Receipt Date: 20110923
  Transmission Date: 20111222
  Serious: Yes (Hospitalization, Other)
  Sender: FDA-Public Use
  Company Number: US-ABBOTT-11P-163-0734180-00

PATIENT
  Sex: Female
  Weight: 90.8 kg

DRUGS (15)
  1. FLUOXETINE [Concomitant]
     Indication: DEPRESSION
  2. DIOVAN [Concomitant]
     Indication: HYPERTENSION
  3. HUMIRA [Suspect]
  4. ASACOL [Concomitant]
     Indication: CROHN'S DISEASE
  5. VITAMIN B-12 [Concomitant]
     Indication: CROHN'S DISEASE
     Route: 045
  6. VOLTAREN [Concomitant]
     Indication: ILIOTIBIAL BAND SYNDROME
     Dosage: GEL
  7. VOLTAREN [Concomitant]
     Indication: PAIN
  8. WELCHOL [Concomitant]
     Indication: BLOOD CHOLESTEROL INCREASED
  9. TRIAMTERENE [Concomitant]
     Indication: HYPERTENSION
  10. LISINOPRIL [Concomitant]
     Indication: HYPERTENSION
  11. FISH OIL [Concomitant]
     Indication: SUPPLEMENTATION THERAPY
  12. HUMIRA [Suspect]
     Indication: CROHN'S DISEASE
     Dates: start: 20100501
  13. VITAMIN D [Concomitant]
     Indication: CROHN'S DISEASE
  14. MIRAPEX [Concomitant]
     Indication: RESTLESS LEGS SYNDROME
  15. APRISO [Concomitant]
     Indication: CROHN'S DISEASE

REACTIONS (6)
  - ARTHROPATHY [None]
  - BASAL CELL CARCINOMA [None]
  - DRUG DOSE OMISSION [None]
  - IMPAIRED HEALING [None]
  - CHONDROPATHY [None]
  - WEIGHT INCREASED [None]
